FAERS Safety Report 10385394 (Version 2)
Quarter: 2014Q3

REPORT INFORMATION
  Report Type: Spontaneous
  Country: US (occurrence: US)
  Receive Date: 20140814
  Receipt Date: 20140814
  Transmission Date: 20150326
  Serious: Yes (Death, Hospitalization)
  Sender: FDA-Public Use
  Company Number: US-GLAXOSMITHKLINE-A0757308A

PATIENT
  Sex: Male
  Weight: 79.5 kg

DRUGS (3)
  1. VITAMIN B12 [Concomitant]
     Active Substance: CYANOCOBALAMIN
  2. ZESTRIL [Concomitant]
     Active Substance: LISINOPRIL
  3. AVANDIA [Suspect]
     Active Substance: ROSIGLITAZONE MALEATE
     Indication: TYPE 2 DIABETES MELLITUS
     Route: 065
     Dates: start: 20000919, end: 20080409

REACTIONS (6)
  - Myocardial infarction [Unknown]
  - Ventricular extrasystoles [Unknown]
  - Respiratory failure [Fatal]
  - Coronary artery disease [Fatal]
  - Cardiac arrest [Fatal]
  - Cardiac failure congestive [Fatal]
